FAERS Safety Report 9908597 (Version 1)
Quarter: 2014Q1

REPORT INFORMATION
  Report Type: Spontaneous
  Country: US (occurrence: None)
  Receive Date: 20140211
  Receipt Date: 20140211
  Transmission Date: 20141002
  Serious: Yes (Other)
  Sender: FDA-Public Use
  Company Number: 2014P1000873

PATIENT
  Age: 66 Year
  Sex: 0

DRUGS (1)
  1. MITOMYCIN [Suspect]
     Indication: BLADDER CANCER
     Route: 043

REACTIONS (5)
  - Syncope [None]
  - Fall [None]
  - Laceration [None]
  - Post procedural complication [None]
  - Urinary retention [None]
